FAERS Safety Report 4264648-X (Version None)
Quarter: 2004Q1

REPORT INFORMATION
  Report Type: 
  Country: None (occurrence: None)
  Receive Date: 20040105
  Receipt Date: 20031219
  Transmission Date: 20041129
  Serious: Yes (Hospitalization)
  Sender: FDA-Public Use
  Company Number: 200314702FR

PATIENT
  Age: 84 Year
  Sex: Female

DRUGS (13)
  1. FUROSEMIDE [Suspect]
     Dosage: 40 MG/DAY IV
     Route: 042
     Dates: start: 20031118, end: 20031120
  2. FOSFOMYCIN SODIUM (FOSFOCINE) POWDER AND SOLVENT FOR INFUSION [Suspect]
     Dosage: 4 G BID IV
     Route: 042
     Dates: start: 20031114, end: 20031120
  3. BISOPROLOL FUMARATE [Suspect]
     Dosage: 10 MG/DAY PO
     Route: 048
     Dates: start: 20010715, end: 20031119
  4. BISOPROLOL FUMARATE [Suspect]
     Dosage: 5 MG/DAY PO
     Route: 048
     Dates: start: 20031120
  5. FUROSEMIDE [Concomitant]
  6. LOVENOX [Concomitant]
  7. FOLIC ACID (SPECIAFOLDINE) [Concomitant]
  8. OMEPRAZOLE [Concomitant]
  9. ACEPROMAZINE, ACEPROMETAZINE, CLORAZEPATE DIPOTASSIUM (NOCTRAN) [Concomitant]
  10. GLYCERYL TRINITRATE (NITRIDERM TTS) [Concomitant]
  11. PARACETAMOL (DAFALGAN) [Concomitant]
  12. BROMAZEPAM (LEXOMIL) [Concomitant]
  13. MIANSERIN HYDROCHLORIDE (ATHYMIL 30 MG) [Concomitant]

REACTIONS (5)
  - ARRHYTHMIA [None]
  - CARDIAC FAILURE [None]
  - CONDITION AGGRAVATED [None]
  - ELECTROCARDIOGRAM T WAVE INVERSION [None]
  - HYPOKALAEMIA [None]
